FAERS Safety Report 9357056 (Version 5)
Quarter: 2013Q3

REPORT INFORMATION
  Report Type: Spontaneous
  Country: US (occurrence: None)
  Receive Date: 20130617
  Receipt Date: 20130906
  Transmission Date: 20140515
  Serious: Yes (Hospitalization)
  Sender: FDA-Public Use
  Company Number: 2013SGN00344

PATIENT
  Age: 18 Year
  Sex: Male
  Weight: 68.2 kg

DRUGS (3)
  1. BRENTUXIMAB VEDOTIN [Suspect]
     Indication: HODGKIN^S DISEASE
     Dosage: Q21D
     Route: 042
     Dates: start: 20130308
  2. GEMCITABINE (GEMCITABINE) [Suspect]
     Indication: HODGKIN^S DISEASE
     Dosage: QCYCLE
     Route: 042
     Dates: start: 20130308, end: 20130426
  3. OXYCONTIN (OXYCODONE HYDROCHLORIDE) [Concomitant]

REACTIONS (16)
  - Pneumonitis [None]
  - Myositis [None]
  - Pericardial effusion [None]
  - Pleural effusion [None]
  - Pruritus [None]
  - Nausea [None]
  - Rash [None]
  - Fatigue [None]
  - Atelectasis [None]
  - Pulmonary mass [None]
  - Cellulitis [None]
  - Inflammation [None]
  - Hypoxia [None]
  - Mediastinal mass [None]
  - Neoplasm [None]
  - Hodgkin^s disease recurrent [None]
